FAERS Safety Report 6335585-1 (Version None)
Quarter: 2009Q3

REPORT INFORMATION
  Report Type: 
  Country: None (occurrence: None)
  Receive Date: 20090831
  Receipt Date: 20090818
  Transmission Date: 20100115
  Serious: Yes (Life-Threatening, Hospitalization)
  Sender: FDA-Public Use
  Company Number: GB-MYLANLABS-2009S1014838

PATIENT
  Age: 25 Year
  Sex: Female

DRUGS (3)
  1. ONDANSETRON [Suspect]
     Indication: PROCEDURAL NAUSEA
     Route: 042
     Dates: start: 20090702, end: 20090702
  2. FENTANYL [Concomitant]
     Indication: GENERAL ANAESTHESIA
  3. PROPOFOL [Concomitant]
     Indication: GENERAL ANAESTHESIA

REACTIONS (2)
  - ANAPHYLACTIC REACTION [None]
  - CONVULSION [None]
